FAERS Safety Report 10616583 (Version 3)
Quarter: 2015Q1

REPORT INFORMATION
  Report Type: Report from Study
  Country: US (occurrence: US)
  Receive Date: 20141201
  Receipt Date: 20150204
  Transmission Date: 20150720
  Serious: Yes (Hospitalization)
  Sender: FDA-Public Use
  Company Number: US-SA-2013SA132411

PATIENT
  Age: 64 Year
  Sex: Female

DRUGS (3)
  1. AUBAGIO [Suspect]
     Active Substance: TERIFLUNOMIDE
     Indication: MULTIPLE SCLEROSIS
     Route: 048
     Dates: start: 20131116
  2. ESTROPIPATE. [Concomitant]
     Active Substance: ESTROPIPATE
     Dates: start: 198506
  3. PRO D3 [Concomitant]
     Indication: MULTIPLE SCLEROSIS
     Dates: start: 2004

REACTIONS (11)
  - Urine odour abnormal [Not Recovered/Not Resolved]
  - Hypersensitivity [Unknown]
  - Malaise [Unknown]
  - Chromaturia [Recovered/Resolved]
  - Depressed mood [Not Recovered/Not Resolved]
  - Pain [Unknown]
  - Back pain [Unknown]
  - Plasma cell myeloma [Not Recovered/Not Resolved]
  - Productive cough [Unknown]
  - Vomiting [Unknown]
  - Productive cough [Unknown]

NARRATIVE: CASE EVENT DATE: 201311
